FAERS Safety Report 16886283 (Version 1)
Quarter: 2019Q4

REPORT INFORMATION
  Report Type: Spontaneous
  Country: US (occurrence: US)
  Receive Date: 20191004
  Receipt Date: 20191004
  Transmission Date: 20200122
  Serious: Yes (Death)
  Sender: FDA-Public Use
  Company Number: None

PATIENT
  Age: 59 Year
  Sex: Female

DRUGS (14)
  1. OPANA [Concomitant]
     Active Substance: OXYMORPHONE HYDROCHLORIDE
  2. LATISSE [Concomitant]
     Active Substance: BIMATOPROST
  3. RANITIDINE. [Concomitant]
     Active Substance: RANITIDINE
  4. ROGAINE [Concomitant]
     Active Substance: MINOXIDIL
  5. ZANTAC [Concomitant]
     Active Substance: RANITIDINE HYDROCHLORIDE
  6. ZOFRAN [Concomitant]
     Active Substance: ONDANSETRON HYDROCHLORIDE
  7. XANAX [Concomitant]
     Active Substance: ALPRAZOLAM
  8. CITALOPRAM [Concomitant]
     Active Substance: CITALOPRAM HYDROBROMIDE
  9. LYRICA [Concomitant]
     Active Substance: PREGABALIN
  10. CLONIDINE. [Concomitant]
     Active Substance: CLONIDINE
  11. ZARXIO [Suspect]
     Active Substance: FILGRASTIM-SNDZ
     Indication: NEUTROPENIA
     Dosage: ?          OTHER FREQUENCY:DAILY FOR 2 DAYS;?
     Route: 058
     Dates: start: 20190711, end: 20190927
  12. METOPROLOL. [Concomitant]
     Active Substance: METOPROLOL
  13. PREGABALIN. [Concomitant]
     Active Substance: PREGABALIN
  14. XGEVA [Concomitant]
     Active Substance: DENOSUMAB

REACTIONS (1)
  - Death [None]

NARRATIVE: CASE EVENT DATE: 20190927
